FAERS Safety Report 11244833 (Version 1)
Quarter: 2015Q3

REPORT INFORMATION
  Report Type: Spontaneous
  Country: GB (occurrence: GB)
  Receive Date: 20150707
  Receipt Date: 20150707
  Transmission Date: 20151125
  Serious: Yes (Hospitalization, Other)
  Sender: FDA-Public Use
  Company Number: PHHY2015GB076981

PATIENT
  Age: 9 Year
  Sex: Female
  Weight: 24 kg

DRUGS (2)
  1. AMITRIPTYLINE [Suspect]
     Active Substance: AMITRIPTYLINE
     Indication: PRODUCT USED FOR UNKNOWN INDICATION
     Route: 065
  2. IMIPRAMINE [Suspect]
     Active Substance: IMIPRAMINE
     Indication: ENURESIS
     Route: 065

REACTIONS (6)
  - Seizure [Recovering/Resolving]
  - Left ventricular failure [Recovering/Resolving]
  - Toxicity to various agents [Recovering/Resolving]
  - Ventricular arrhythmia [Recovering/Resolving]
  - Loss of consciousness [Unknown]
  - Myocarditis [Recovering/Resolving]
